FAERS Safety Report 8825814 (Version 2)
Quarter: 2013Q1

REPORT INFORMATION
  Report Type: Spontaneous
  Country: US (occurrence: US)
  Receive Date: 20121004
  Receipt Date: 20130306
  Transmission Date: 20140127
  Serious: Yes (Other)
  Sender: FDA-Public Use
  Company Number: US-ASTRAZENECA-2010SE28607

PATIENT
  Age: 54 Year
  Sex: Female

DRUGS (5)
  1. NEXIUM [Suspect]
     Route: 048
  2. PRILOSEC [Suspect]
     Route: 048
  3. LISINOPRIL [Concomitant]
  4. CYMBALTA [Concomitant]
  5. TRAZODONE [Concomitant]

REACTIONS (9)
  - Wound infection [Recovering/Resolving]
  - Inflammatory bowel disease [Unknown]
  - Wound dehiscence [Unknown]
  - Multiple sclerosis [Unknown]
  - Aphagia [Unknown]
  - Vomiting [Unknown]
  - Intentional drug misuse [Unknown]
  - Drug dose omission [Unknown]
  - Drug ineffective [Unknown]
